FAERS Safety Report 16624926 (Version 2)
Quarter: 2019Q3

REPORT INFORMATION
  Report Type: Spontaneous
  Country: TH (occurrence: TH)
  Receive Date: 20190724
  Receipt Date: 20190806
  Transmission Date: 20191004
  Serious: Yes (Other)
  Sender: FDA-Public Use
  Company Number: TH-009507513-1907THA012096

PATIENT
  Age: 35 Year
  Sex: Female

DRUGS (1)
  1. NASONEX [Suspect]
     Active Substance: MOMETASONE FUROATE
     Indication: RHINITIS ALLERGIC
     Dosage: UNK , DAILY
     Route: 045
     Dates: start: 2018

REACTIONS (4)
  - Gastritis erosive [Unknown]
  - Oropharyngeal pain [Unknown]
  - Oesophageal candidiasis [Unknown]
  - Throat irritation [Unknown]

NARRATIVE: CASE EVENT DATE: 2019
